FAERS Safety Report 4503411-9 (Version None)
Quarter: 2004Q4

REPORT INFORMATION
  Report Type: 
  Country: None (occurrence: None)
  Receive Date: 20041112
  Receipt Date: 20041029
  Transmission Date: 20050328
  Serious: Yes (Other)
  Sender: FDA-Public Use
  Company Number: 2004242363GB

PATIENT
  Age: 62 Year
  Sex: Female
  Weight: 89.1 kg

DRUGS (3)
  1. CELEBREX [Suspect]
     Indication: SCOLIOSIS
     Dosage: ORAL
     Route: 048
     Dates: start: 20040419, end: 20041026
  2. ACETAMINOPHEN [Concomitant]
  3. INFLUVAC (INFLUENZA VIRUS VACCINE POLYVALENT) [Concomitant]

REACTIONS (4)
  - DRUG DEPENDENCE [None]
  - FEELING ABNORMAL [None]
  - SENSORY DISTURBANCE [None]
  - TREATMENT NONCOMPLIANCE [None]
